APPROVED DRUG PRODUCT: LEUCOVORIN CALCIUM PRESERVATIVE FREE
Active Ingredient: LEUCOVORIN CALCIUM
Strength: EQ 100MG BASE/10ML (EQ 10MG BASE/ML) **Federal Register determination that product was not discontinued or withdrawn for safety or effectiveness reasons**
Dosage Form/Route: SOLUTION;INTRAMUSCULAR, INTRAVENOUS
Application: A040147 | Product #001
Applicant: HOSPIRA INC
Approved: Jun 25, 1997 | RLD: No | RS: No | Type: DISCN